FAERS Safety Report 4940355-2 (Version None)
Quarter: 2006Q1

REPORT INFORMATION
  Report Type: 
  Country: None (occurrence: None)
  Receive Date: 20060310
  Receipt Date: 20060306
  Transmission Date: 20060701
  Serious: Yes (Other)
  Sender: FDA-Public Use
  Company Number: JP-MERCK-0603USA01400

PATIENT
  Age: 67 Year
  Sex: Female

DRUGS (5)
  1. FOSAMAX [Suspect]
     Route: 048
     Dates: start: 20060101
  2. EPADEL [Concomitant]
     Route: 048
  3. SELBEX [Concomitant]
     Route: 048
  4. BERIZYME (LYSOZYME CHLORIDE) [Concomitant]
     Route: 048
  5. ONEALFA [Concomitant]
     Route: 048
     Dates: start: 20060101

REACTIONS (2)
  - GASTRIC DISORDER [None]
  - POST GASTRIC SURGERY SYNDROME [None]
